FAERS Safety Report 9195988 (Version 2)
Quarter: 2013Q2

REPORT INFORMATION
  Report Type: Spontaneous
  Country: GB (occurrence: GB)
  Receive Date: 20130328
  Receipt Date: 20130429
  Transmission Date: 20140414
  Serious: Yes (Life-Threatening, Other)
  Sender: FDA-Public Use
  Company Number: PHFR2013GB001836

PATIENT
  Age: 28 Year
  Sex: Male

DRUGS (1)
  1. CLOZARIL [Suspect]
     Indication: SCHIZOPHRENIA
     Dosage: 300 MG, DAILY
     Route: 048
     Dates: start: 201203, end: 201303

REACTIONS (6)
  - Myocarditis [Recovered/Resolved]
  - Tachycardia [Unknown]
  - Dyspnoea [Unknown]
  - Troponin increased [Unknown]
  - Electrocardiogram T wave inversion [Unknown]
  - Dizziness postural [Unknown]
